APPROVED DRUG PRODUCT: PODOFILOX
Active Ingredient: PODOFILOX
Strength: 0.5%
Dosage Form/Route: SOLUTION;TOPICAL
Application: A090184 | Product #001
Applicant: BAUSCH AND LOMB INC
Approved: Jul 21, 2010 | RLD: No | RS: No | Type: DISCN